FAERS Safety Report 14254753 (Version 1)
Quarter: 2017Q4

REPORT INFORMATION
  Report Type: Spontaneous
  Country: US (occurrence: US)
  Receive Date: 20171205
  Receipt Date: 20171205
  Transmission Date: 20180321
  Serious: Yes (Disabling)
  Sender: FDA-Public Use
  Company Number: None

PATIENT
  Age: 21 Year
  Sex: Female
  Weight: 60.75 kg

DRUGS (8)
  1. PROBIOTICS [Concomitant]
     Active Substance: PROBIOTICS NOS
  2. TYLENOL [Concomitant]
     Active Substance: ACETAMINOPHEN
  3. IBUPROFEN. [Concomitant]
     Active Substance: IBUPROFEN
  4. BENADRYL [Concomitant]
     Active Substance: DIPHENHYDRAMINE HYDROCHLORIDE
  5. HYDROCORTISONE. [Suspect]
     Active Substance: HYDROCORTISONE
     Indication: ECZEMA
  6. VITAMIN D [Concomitant]
     Active Substance: CHOLECALCIFEROL
  7. HYDROCORTISONE. [Suspect]
     Active Substance: HYDROCORTISONE
     Indication: DERMATITIS ATOPIC
  8. BIRTH CONTROL [Concomitant]
     Active Substance: UNSPECIFIED INGREDIENT

REACTIONS (22)
  - Movement disorder [None]
  - Temperature intolerance [None]
  - Adrenal disorder [None]
  - Panic attack [None]
  - Pruritus [None]
  - Insomnia [None]
  - Drug intolerance [None]
  - Humidity intolerance [None]
  - Malaise [None]
  - Bedridden [None]
  - Skin exfoliation [None]
  - Unevaluable event [None]
  - Drug ineffective [None]
  - Dermatitis [None]
  - Temperature regulation disorder [None]
  - Alopecia [None]
  - Skin atrophy [None]
  - Impaired healing [None]
  - Arthralgia [None]
  - Wound [None]
  - Therapy cessation [None]
  - Pain [None]

NARRATIVE: CASE EVENT DATE: 20140110
